FAERS Safety Report 7341048-7 (Version None)
Quarter: 2011Q1

REPORT INFORMATION
  Report Type: 
  Country: None (occurrence: None)
  Receive Date: 20110228
  Receipt Date: 20110211
  Transmission Date: 20110831
  Serious: Yes (Hospitalization, Other)
  Sender: FDA-Public Use
  Company Number: DSA_44952_2011

PATIENT
  Sex: Female

DRUGS (1)
  1. NIFEDIPINE [Suspect]
     Indication: HYPERTENSION
     Dosage: 30 MG QD, ORAL
     Route: 048
     Dates: start: 19991214, end: 20040521

REACTIONS (4)
  - NEURALGIA [None]
  - MUSCLE SPASMS [None]
  - VASOCONSTRICTION [None]
  - TOOTH LOSS [None]
